FAERS Safety Report 8024602-9 (Version None)
Quarter: 2012Q1

REPORT INFORMATION
  Report Type: 
  Country: None (occurrence: None)
  Receive Date: 20120105
  Receipt Date: 20120104
  Transmission Date: 20120608
  Serious: Yes (Other)
  Sender: FDA-Public Use
  Company Number: FR-ABBOTT-11P-056-0886855-00

PATIENT
  Sex: Female

DRUGS (7)
  1. CLARITHROMYCIN [Interacting]
     Indication: CEREBRAL TOXOPLASMOSIS
     Route: 048
     Dates: start: 20110825, end: 20110901
  2. ISENTRESS [Concomitant]
     Indication: PRODUCT USED FOR UNKNOWN INDICATION
  3. ATOVAQUONE [Suspect]
     Indication: PRODUCT USED FOR UNKNOWN INDICATION
     Route: 048
     Dates: start: 20110917
  4. TRUVADA [Concomitant]
     Indication: PRODUCT USED FOR UNKNOWN INDICATION
  5. ESCITALOPRAM OXALATE [Concomitant]
     Indication: PRODUCT USED FOR UNKNOWN INDICATION
  6. PENTACARINAT [Concomitant]
     Indication: PRODUCT USED FOR UNKNOWN INDICATION
  7. MINOCYCLINE HCL [Suspect]
     Indication: PRODUCT USED FOR UNKNOWN INDICATION
     Route: 048
     Dates: start: 20110917

REACTIONS (1)
  - PANCYTOPENIA [None]
